FAERS Safety Report 4798962-6 (Version None)
Quarter: 2005Q4

REPORT INFORMATION
  Report Type: 
  Country: None (occurrence: None)
  Receive Date: 20051011
  Receipt Date: 20050927
  Transmission Date: 20060501
  Serious: Yes (Death)
  Sender: FDA-Public Use
  Company Number: MK200509-0310-1

PATIENT
  Age: 49 Year
  Sex: Male

DRUGS (2)
  1. METHADOSE [Suspect]
     Indication: DEPENDENCE
     Dosage: 185 MG, QD
  2. ANTIRETROVIRAL THERAPY [Concomitant]

REACTIONS (11)
  - BLOOD POTASSIUM DECREASED [None]
  - CHEST PAIN [None]
  - DIZZINESS [None]
  - ELECTROCARDIOGRAM QT CORRECTED INTERVAL PROLONGED [None]
  - ELECTROCARDIOGRAM QT PROLONGED [None]
  - LOSS OF CONSCIOUSNESS [None]
  - MUSCLE SPASMS [None]
  - PALPITATIONS [None]
  - TORSADE DE POINTES [None]
  - VENTRICULAR ARRHYTHMIA [None]
  - VENTRICULAR TACHYCARDIA [None]
